FAERS Safety Report 16541575 (Version 2)
Quarter: 2019Q3

REPORT INFORMATION
  Report Type: Report from Study
  Country: CA (occurrence: CA)
  Receive Date: 20190708
  Receipt Date: 20190802
  Transmission Date: 20191004
  Serious: Yes (Other)
  Sender: FDA-Public Use
  Company Number: CA-JNJFOC-20190632005

PATIENT
  Age: 56 Year
  Sex: Female
  Weight: 86 kg

DRUGS (2)
  1. USTEKINUMAB SOLUTION FOR INJECTION IN PRE-FILLED SYRINGE [Suspect]
     Active Substance: USTEKINUMAB
     Indication: PSORIASIS
     Route: 058
     Dates: start: 20170406
  2. USTEKINUMAB SOLUTION FOR INJECTION IN PRE-FILLED SYRINGE [Suspect]
     Active Substance: USTEKINUMAB
     Indication: PSORIATIC ARTHROPATHY

REACTIONS (2)
  - Basal cell carcinoma [Recovered/Resolved]
  - Postoperative wound infection [Unknown]
